FAERS Safety Report 6810520-8 (Version None)
Quarter: 2010Q2

REPORT INFORMATION
  Report Type: 
  Country: None (occurrence: None)
  Receive Date: 20100630
  Receipt Date: 20100616
  Transmission Date: 20101027
  Serious: Yes (Other)
  Sender: FDA-Public Use
  Company Number: GB-MYLANLABS-2010S1010834

PATIENT
  Age: 44 Year
  Sex: Male
  Weight: 71.2 kg

DRUGS (5)
  1. CLARITHROMYCIN [Suspect]
     Indication: ATYPICAL MYCOBACTERIAL INFECTION
     Dates: start: 20100510, end: 20100525
  2. ETHAMBUTOL HYDROCHLORIDE [Concomitant]
     Indication: MYCOBACTERIUM AVIUM COMPLEX INFECTION
     Route: 048
     Dates: start: 20080416
  3. ETHAMBUTOL HYDROCHLORIDE [Concomitant]
     Indication: TUBERCULOSIS
     Route: 048
  4. RIFAMPICIN [Concomitant]
     Indication: MYCOBACTERIUM AVIUM COMPLEX INFECTION
     Route: 048
     Dates: start: 20071031
  5. RIFAMPICIN [Concomitant]
     Indication: TUBERCULOSIS
     Route: 048

REACTIONS (4)
  - DYSGEUSIA [None]
  - HEADACHE [None]
  - MOUTH ULCERATION [None]
  - NAUSEA [None]
